FAERS Safety Report 9562852 (Version 1)
Quarter: 2013Q3

REPORT INFORMATION
  Report Type: Spontaneous
  Country: GB (occurrence: GB)
  Receive Date: 20130927
  Receipt Date: 20130927
  Transmission Date: 20140515
  Serious: Yes (Disabling, Other)
  Sender: FDA-Public Use
  Company Number: PHFR2013GB005006

PATIENT
  Age: 33 Year
  Sex: Male
  Weight: 75 kg

DRUGS (5)
  1. CLOMIPRAMINE [Suspect]
     Indication: ANXIETY
     Dosage: 30 MG
     Route: 048
     Dates: start: 20130802
  2. CLOMIPRAMINE [Suspect]
     Dosage: INCREASING FROM 1MG
     Route: 048
     Dates: start: 20130708, end: 20130807
  3. DIAZEPAM [Concomitant]
     Dosage: 5 MG, ONLY FOR EMERGENCY
  4. TRAZODONE [Concomitant]
  5. ZOPICLONE [Concomitant]
     Dosage: 7.5 MG

REACTIONS (9)
  - Hypoaesthesia [Not Recovered/Not Resolved]
  - Feeling abnormal [Not Recovered/Not Resolved]
  - Suicidal ideation [Not Recovered/Not Resolved]
  - Confusional state [Not Recovered/Not Resolved]
  - Depersonalisation [Not Recovered/Not Resolved]
  - Agitation [Not Recovered/Not Resolved]
  - Anxiety [Not Recovered/Not Resolved]
  - Condition aggravated [Not Recovered/Not Resolved]
  - Withdrawal syndrome [Not Recovered/Not Resolved]
